FAERS Safety Report 8496285-5 (Version None)
Quarter: 2012Q3

REPORT INFORMATION
  Report Type: 
  Country: None (occurrence: None)
  Receive Date: 20120709
  Receipt Date: 20120604
  Transmission Date: 20120928
  Serious: Yes (Other)
  Sender: FDA-Public Use
  Company Number: US-ASTRAZENECA-2011SE57982

PATIENT
  Age: 50 Year
  Sex: Female
  Weight: 54.4 kg

DRUGS (12)
  1. SEROQUEL [Suspect]
     Route: 048
     Dates: start: 20100101
  2. SEROQUEL [Suspect]
     Route: 048
  3. SEROQUEL [Suspect]
     Route: 048
  4. LITHIUM CARBONATE [Suspect]
     Route: 065
  5. DEPAKOTE [Concomitant]
     Indication: BIPOLAR DISORDER
  6. SEROQUEL [Suspect]
     Indication: BIPOLAR II DISORDER
     Route: 048
  7. NEURONTIN [Suspect]
     Route: 065
  8. VISTARIL [Concomitant]
  9. METHADONE HCL [Concomitant]
     Indication: PAIN
  10. PASSION FLOWER ROOT EXTRACT [Concomitant]
  11. TRAVINO [Concomitant]
     Indication: BIPOLAR DISORDER
  12. TRAZIDONE [Concomitant]

REACTIONS (10)
  - ACCIDENT [None]
  - FEELING ABNORMAL [None]
  - CLAUSTROPHOBIA [None]
  - MOBILITY DECREASED [None]
  - WEIGHT INCREASED [None]
  - ANXIETY [None]
  - PSYCHOMOTOR HYPERACTIVITY [None]
  - PANIC ATTACK [None]
  - INTENTIONAL DRUG MISUSE [None]
  - DRUG INEFFECTIVE [None]
